FAERS Safety Report 13007083 (Version 2)
Quarter: 2016Q4

REPORT INFORMATION
  Report Type: Spontaneous
  Country: DE (occurrence: DE)
  Receive Date: 20161207
  Receipt Date: 20161230
  Transmission Date: 20170207
  Serious: Yes (Life-Threatening, Hospitalization)
  Sender: FDA-Public Use
  Company Number: DE-SA-2016SA221960

PATIENT
  Age: 77 Year
  Sex: Female
  Weight: 49 kg

DRUGS (5)
  1. 5-FU [Interacting]
     Active Substance: FLUOROURACIL
     Route: 041
     Dates: start: 20160424, end: 20160424
  2. 5-FU [Interacting]
     Active Substance: FLUOROURACIL
     Route: 040
     Dates: start: 20160424, end: 20160424
  3. 5-FU [Interacting]
     Active Substance: FLUOROURACIL
     Route: 040
     Dates: start: 20161120, end: 20161120
  4. 5-FU [Interacting]
     Active Substance: FLUOROURACIL
     Route: 041
     Dates: start: 20161120, end: 20161120
  5. CLEXANE [Suspect]
     Active Substance: ENOXAPARIN SODIUM
     Dosage: UNIQUE INJECTION WITH 40 MG
     Route: 058
     Dates: start: 20161122, end: 20161122

REACTIONS (7)
  - Grunting [Unknown]
  - Loss of consciousness [Unknown]
  - Cardiac arrest [Recovering/Resolving]
  - Cardiac disorder [Recovering/Resolving]
  - Unevaluable event [Recovering/Resolving]
  - Drug interaction [Recovering/Resolving]
  - Hypotonia [Unknown]

NARRATIVE: CASE EVENT DATE: 20161122
